FAERS Safety Report 9063282 (Version 1)
Quarter: 2013Q1

REPORT INFORMATION
  Report Type: Report from Study
  Country: US (occurrence: US)
  Receive Date: 20130129
  Receipt Date: 20130129
  Transmission Date: 20140127
  Serious: No
  Sender: FDA-Public Use
  Company Number: US-ABBOTT-12P-163-0951834-00

PATIENT
  Sex: Female
  Weight: 64.01 kg

DRUGS (9)
  1. HUMIRA 40 MG/0.8 ML PEN [Suspect]
     Indication: PSORIASIS
     Dates: start: 2011, end: 20120618
  2. HUMIRA 40 MG/0.8 ML PEN [Suspect]
     Dates: start: 20120618
  3. SYMBICORT [Concomitant]
     Indication: ASTHMA
  4. SPIRIVA [Concomitant]
     Indication: ASTHMA
  5. XOPENEX [Concomitant]
     Indication: ASTHMA
     Route: 055
  6. SINGULAIR [Concomitant]
     Indication: ASTHMA
  7. PREVACID [Concomitant]
     Indication: GASTROOESOPHAGEAL REFLUX DISEASE
  8. BENTYL [Concomitant]
     Indication: IRRITABLE BOWEL SYNDROME
  9. CLOBETASOL [Concomitant]
     Indication: PSORIASIS
     Route: 061

REACTIONS (5)
  - Injection site erythema [Recovered/Resolved]
  - Psoriasis [Not Recovered/Not Resolved]
  - Arthralgia [Not Recovered/Not Resolved]
  - Injection site pruritus [Recovered/Resolved]
  - Injection site swelling [Recovered/Resolved]
